FAERS Safety Report 9103518 (Version 10)
Quarter: 2015Q1

REPORT INFORMATION
  Report Type: Spontaneous
  Country: US (occurrence: US)
  Receive Date: 20130219
  Receipt Date: 20141118
  Transmission Date: 20150721
  Serious: Yes (Hospitalization, Other)
  Sender: FDA-Public Use
  Company Number: US-MERCK-1302USA007787

PATIENT
  Sex: Female
  Weight: 55.33 kg

DRUGS (5)
  1. FOSAMAX [Suspect]
     Active Substance: ALENDRONATE SODIUM
     Dosage: 10 MG, UNK
     Route: 048
  2. AMLODIPINE [Concomitant]
     Active Substance: AMLODIPINE BESYLATE
     Indication: HYPERTENSION
     Dosage: UNK
     Dates: start: 1998
  3. FOSAMAX [Suspect]
     Active Substance: ALENDRONATE SODIUM
     Indication: OSTEOPOROSIS
     Dosage: 70 MG, UNK
     Route: 048
     Dates: end: 2011
  4. FOSAMAX PLUS D [Suspect]
     Active Substance: ALENDRONATE SODIUM\CHOLECALCIFEROL
     Indication: OSTEOPOROSIS
     Dosage: 70 MG, QW
     Route: 048
  5. ACETAZOLAMIDE. [Concomitant]
     Active Substance: ACETAZOLAMIDE
     Indication: EYE DISORDER
     Dosage: UNK
     Dates: start: 1998

REACTIONS (24)
  - Nephropathy [Unknown]
  - Stag horn calculus [Unknown]
  - Phlebolith [Unknown]
  - Vascular calcification [Unknown]
  - Vitamin D deficiency [Unknown]
  - Hip arthroplasty [Unknown]
  - Fall [Unknown]
  - Internal fixation of fracture [Unknown]
  - Bone graft [Unknown]
  - Renal stone removal [Unknown]
  - Calcium deficiency [Unknown]
  - Inappropriate schedule of drug administration [Unknown]
  - Peripheral arterial occlusive disease [Unknown]
  - Osteoarthritis [Unknown]
  - Osteosclerosis [Unknown]
  - Femur fracture [Unknown]
  - Glaucoma [Unknown]
  - Osteoarthritis [Unknown]
  - Hip arthroplasty [Unknown]
  - Low turnover osteopathy [Unknown]
  - Osteoarthritis [Unknown]
  - Exostosis [Unknown]
  - Anaemia [Unknown]
  - Osteopenia [Unknown]

NARRATIVE: CASE EVENT DATE: 1999
